FAERS Safety Report 4858913-2 (Version None)
Quarter: 2005Q4

REPORT INFORMATION
  Report Type: 
  Country: None (occurrence: None)
  Receive Date: 20051219
  Receipt Date: 20050825
  Transmission Date: 20060501
  Serious: No
  Sender: FDA-Public Use
  Company Number: US-GLAXOSMITHKLINE-A0571783A

PATIENT
  Age: 57 Year
  Sex: Female

DRUGS (2)
  1. NICODERM CQ [Suspect]
     Dates: start: 20050807, end: 20050825
  2. NICORETTE (MINT) [Suspect]
     Dates: start: 20050807, end: 20050825

REACTIONS (8)
  - ABNORMAL DREAMS [None]
  - DRUG INEFFECTIVE [None]
  - ERYTHEMA [None]
  - HICCUPS [None]
  - HYPERVENTILATION [None]
  - INSOMNIA [None]
  - INTENTIONAL DRUG MISUSE [None]
  - NASAL CONGESTION [None]
